FAERS Safety Report 19829739 (Version 1)
Quarter: 2021Q3

REPORT INFORMATION
  Report Type: Spontaneous
  Country: US (occurrence: US)
  Receive Date: 20210914
  Receipt Date: 20210914
  Transmission Date: 20211014
  Serious: Yes (Other)
  Sender: FDA-Public Use
  Company Number: None

PATIENT
  Age: 60 Year
  Sex: Female
  Weight: 83.25 kg

DRUGS (5)
  1. NPH INSULIN [Concomitant]
     Active Substance: INSULIN BEEF
  2. XTAMPZA [Suspect]
     Active Substance: OXYCODONE
     Indication: PAIN
     Dates: start: 20170101
  3. IBUPROFEN. [Concomitant]
     Active Substance: IBUPROFEN
  4. METFORMIN [Concomitant]
     Active Substance: METFORMIN HYDROCHLORIDE
  5. OXYCODONE [Concomitant]
     Active Substance: OXYCODONE

REACTIONS (2)
  - Pain [None]
  - Therapeutic product effect decreased [None]

NARRATIVE: CASE EVENT DATE: 20170101
